FAERS Safety Report 10363741 (Version 1)
Quarter: 2014Q3

REPORT INFORMATION
  Report Type: Spontaneous
  Country: US (occurrence: US)
  Receive Date: 20140805
  Receipt Date: 20140805
  Transmission Date: 20150326
  Serious: No
  Sender: FDA-Public Use
  Company Number: US-PFIZER INC-2014214063

PATIENT
  Sex: Female
  Weight: 81.2 kg

DRUGS (3)
  1. NEOMYCIN SULFATE. [Suspect]
     Active Substance: NEOMYCIN SULFATE
     Dosage: UNK
  2. FELDENE [Suspect]
     Active Substance: PIROXICAM
     Dosage: UNK
  3. IODINE [Suspect]
     Active Substance: IODINE
     Dosage: UNK
     Route: 061

REACTIONS (1)
  - Drug hypersensitivity [Unknown]
